FAERS Safety Report 6423737-1 (Version None)
Quarter: 2009Q4

REPORT INFORMATION
  Report Type: 
  Country: None (occurrence: None)
  Receive Date: 20091102
  Receipt Date: 20091023
  Transmission Date: 20100525
  Serious: Yes (Hospitalization)
  Sender: FDA-Public Use
  Company Number: BE-ABBOTT-08P-013-0450550-01

PATIENT
  Sex: Female
  Weight: 74 kg

DRUGS (12)
  1. HUMIRA [Suspect]
     Indication: CROHN'S DISEASE
     Route: 058
     Dates: start: 20080414, end: 20080414
  2. NEXIUM [Concomitant]
     Indication: OESOPHAGITIS
     Dates: start: 19970101
  3. LEVOTHYROXINE SODIUM [Concomitant]
     Indication: HYPOTHYROIDISM
     Dates: start: 20050831
  4. IMPLANON [Concomitant]
     Indication: CONTRACEPTION
     Dates: start: 20060401
  5. D-CURE [Concomitant]
     Indication: OSTEOPOROSIS
     Dates: start: 20071211
  6. IDEOS [Concomitant]
     Indication: OSTEOPOROSIS
     Dates: start: 20071211
  7. XANAX [Concomitant]
     Indication: ANXIETY
     Dates: start: 20071110
  8. TEMESTA [Concomitant]
     Indication: ANXIETY
     Dates: start: 20071122
  9. ZYRTEC [Concomitant]
     Indication: ERYTHEMA
     Dates: start: 20080308, end: 20080322
  10. MEDROL [Concomitant]
     Indication: PRURIGO
     Dates: start: 20080407, end: 20080414
  11. MEDROL [Concomitant]
     Indication: CROHN'S DISEASE
     Dates: start: 20080415, end: 20080501
  12. MEDROL [Concomitant]
     Dates: start: 20080501

REACTIONS (6)
  - ALVEOLITIS [None]
  - DRUG HYPERSENSITIVITY [None]
  - ESCHERICHIA SEPSIS [None]
  - ESCHERICHIA URINARY TRACT INFECTION [None]
  - LUNG INFECTION [None]
  - PERICARDIAL EFFUSION [None]
